FAERS Safety Report 17010519 (Version 2)
Quarter: 2019Q4

REPORT INFORMATION
  Report Type: Spontaneous
  Country: RO (occurrence: RO)
  Receive Date: 20191108
  Receipt Date: 20191122
  Transmission Date: 20200122
  Serious: Yes (Other)
  Sender: FDA-Public Use
  Company Number: RO-BAYER-2019-198013

PATIENT
  Age: 82 Year
  Sex: Male

DRUGS (2)
  1. NEXAVAR [Suspect]
     Active Substance: SORAFENIB
     Indication: HEPATIC NEOPLASM
     Dosage: DAILY DOSE 400 MG
     Route: 048
     Dates: start: 201503
  2. NEXAVAR [Suspect]
     Active Substance: SORAFENIB
     Indication: HEPATIC NEOPLASM
     Dosage: DAILY DOSE 200 MG
     Route: 048
     Dates: end: 201506

REACTIONS (5)
  - Hepatic neoplasm [None]
  - Drug intolerance [None]
  - Diarrhoea [None]
  - Asthenia [None]
  - Abdominal pain [None]

NARRATIVE: CASE EVENT DATE: 201503
